FAERS Safety Report 9900326 (Version 1)
Quarter: 2014Q1

REPORT INFORMATION
  Report Type: Spontaneous
  Country: IN (occurrence: IN)
  Receive Date: 20140216
  Receipt Date: 20140216
  Transmission Date: 20141002
  Serious: Yes (Other)
  Sender: FDA-Public Use
  Company Number: IN-009507513-1402IND005305

PATIENT
  Age: 45 Year
  Sex: Female
  Weight: 84 kg

DRUGS (1)
  1. JANUMET [Suspect]
     Dosage: 1 DF, UNK
     Route: 048
     Dates: end: 201401

REACTIONS (2)
  - Cardiac disorder [Not Recovered/Not Resolved]
  - Cardiac pacemaker insertion [Unknown]
